FAERS Safety Report 9542796 (Version 1)
Quarter: 2013Q3

REPORT INFORMATION
  Report Type: Spontaneous
  Country: US (occurrence: US)
  Receive Date: 20130923
  Receipt Date: 20130923
  Transmission Date: 20140515
  Serious: No
  Sender: FDA-Public Use
  Company Number: US-PFIZER INC-2013270224

PATIENT
  Age: 76 Year
  Sex: Male
  Weight: 92.97 kg

DRUGS (5)
  1. LISINOPRIL [Suspect]
     Indication: HYPERTENSION
     Dosage: 40MG DAILY
  2. SIMVASTATIN [Suspect]
     Indication: HYPERTENSION
     Dosage: 40MG DAILY
  3. PROPANOLOL HCL [Suspect]
     Indication: HYPERTENSION
     Dosage: UNK
  4. PNEUMOCOCCAL POLYSACCHARIDE VACCINE [Suspect]
     Indication: PNEUMONIA
     Dosage: UNK
     Dates: start: 20130914
  5. BISOPROLOL FUMARATE/HYDROCHLOROTHIAZIDE [Suspect]
     Indication: HYPERTENSION
     Dosage: 5/6.25MG DAILY

REACTIONS (3)
  - Dyspnoea [Not Recovered/Not Resolved]
  - Drug ineffective [Unknown]
  - Off label use [Unknown]
